FAERS Safety Report 7201868-6 (Version None)
Quarter: 2010Q4

REPORT INFORMATION
  Report Type: 
  Country: None (occurrence: None)
  Receive Date: 20101229
  Receipt Date: 20101214
  Transmission Date: 20110411
  Serious: Yes (Hospitalization)
  Sender: FDA-Public Use
  Company Number: CH-CELGENEUS-151-20785-10121492

PATIENT
  Age: 65 Year
  Sex: Male

DRUGS (6)
  1. THALIDOMIDE [Suspect]
     Indication: MULTIPLE MYELOMA
     Route: 048
     Dates: start: 20070824, end: 20070924
  2. DEXAMETHASONE [Suspect]
     Indication: MULTIPLE MYELOMA
     Route: 048
     Dates: start: 20070824
  3. LEVOFLOXACIN [Concomitant]
     Route: 048
     Dates: start: 20070913, end: 20070927
  4. AMLODIPINE [Concomitant]
     Route: 048
  5. NEUPOGEN [Concomitant]
     Route: 058
  6. IMIPENEM AND CILASTATIN [Concomitant]
     Route: 051
     Dates: start: 20070911, end: 20070911

REACTIONS (2)
  - MUCOSAL INFLAMMATION [None]
  - PHARYNGEAL INFLAMMATION [None]
